FAERS Safety Report 4427912-7 (Version None)
Quarter: 2004Q3

REPORT INFORMATION
  Report Type: 
  Country: None (occurrence: None)
  Receive Date: 20040813
  Receipt Date: 20040804
  Transmission Date: 20050211
  Serious: Yes (Hospitalization, Disabling)
  Sender: FDA-Public Use
  Company Number: 2004226907US

PATIENT
  Age: 46 Year
  Sex: Female

DRUGS (7)
  1. LINEZOLID (LINEZOLID) TABLET [Suspect]
     Indication: STAPHYLOCOCCAL INFECTION
     Dosage: 600 MG, BID, ORAL
     Route: 048
     Dates: start: 20020301
  2. RIFAMPICIN [Suspect]
     Dosage: 600 MG, QD,
  3. OXYCONTIN [Concomitant]
  4. OXYCODONE (OXYCODONE) [Concomitant]
  5. ALBUTEROL [Concomitant]
  6. IPRATROPIUM BROMIDE [Concomitant]
  7. THEOPHYLLINE [Concomitant]

REACTIONS (7)
  - CARDIO-RESPIRATORY ARREST [None]
  - COMPUTERISED TOMOGRAM ABNORMAL [None]
  - GASTROENTERITIS [None]
  - NEUROPATHY PERIPHERAL [None]
  - POLYNEUROPATHY [None]
  - SPINAL MYELOGRAM ABNORMAL [None]
  - THERAPEUTIC AGENT TOXICITY [None]
